FAERS Safety Report 8785488 (Version 3)
Quarter: 2013Q1

REPORT INFORMATION
  Report Type: Report from Study
  Country: JP (occurrence: JP)
  Receive Date: 20120914
  Receipt Date: 20130125
  Transmission Date: 20140127
  Serious: Yes (Hospitalization)
  Sender: FDA-Public Use
  Company Number: JP-NAPPMUNDI-MAG-2012-0002287

PATIENT
  Age: 72 Year
  Sex: Male

DRUGS (4)
  1. BUPRENORPHINE TRANSDERMAL SYSTEM 5 MG [Suspect]
     Indication: ANALGESIC THERAPY
     Dosage: 5 MCG, Q1H
     Route: 062
     Dates: start: 20120808, end: 20120824
  2. SODIUM HYALURONATE [Concomitant]
     Dosage: 25 MG, DAILY
     Route: 042
     Dates: start: 20111221
  3. PRIMPERAN [Concomitant]
     Indication: PROPHYLAXIS
     Dosage: 15 MG, DAILY
     Route: 048
     Dates: start: 20120808, end: 20120815
  4. MOHRUS [Concomitant]
     Indication: ANALGESIC THERAPY
     Dosage: 70 MG, DAILY
     Route: 061

REACTIONS (1)
  - Idiopathic thrombocytopenic purpura [Recovering/Resolving]
